FAERS Safety Report 18081394 (Version 4)
Quarter: 2020Q3

REPORT INFORMATION
  Report Type: Spontaneous
  Country: US (occurrence: US)
  Receive Date: 20200728
  Receipt Date: 20200806
  Transmission Date: 20201103
  Serious: Yes (Other)
  Sender: FDA-Public Use
  Company Number: US-PFIZER INC-2020254004

PATIENT
  Age: 69 Year
  Sex: Male

DRUGS (2)
  1. MEKTOVI [Suspect]
     Active Substance: BINIMETINIB
     Dosage: 15 MG
  2. MEKTOVI [Suspect]
     Active Substance: BINIMETINIB
     Indication: LUNG CANCER METASTATIC
     Dosage: 45 MG

REACTIONS (3)
  - Agranulocytosis [Unknown]
  - Off label use [Unknown]
  - Product use in unapproved indication [Unknown]
